FAERS Safety Report 9239743 (Version 1)
Quarter: 2013Q2

REPORT INFORMATION
  Report Type: Spontaneous
  Country: JP (occurrence: JP)
  Receive Date: 20130418
  Receipt Date: 20130418
  Transmission Date: 20140414
  Serious: Yes (Hospitalization, Other)
  Sender: FDA-Public Use
  Company Number: JP-PFIZER INC-2013085304

PATIENT
  Sex: Male

DRUGS (2)
  1. TORISEL [Suspect]
     Indication: RENAL CANCER METASTATIC
     Dosage: 25 MG, WEEKLY
     Route: 041
     Dates: start: 201207
  2. LYRICA [Concomitant]
     Indication: NEURALGIA
     Route: 048

REACTIONS (4)
  - Psoriasis [Recovering/Resolving]
  - Device related infection [Unknown]
  - Local swelling [Unknown]
  - Diarrhoea [Unknown]
